FAERS Safety Report 8544508-6 (Version None)
Quarter: 2012Q3

REPORT INFORMATION
  Report Type: 
  Country: None (occurrence: None)
  Receive Date: 20120717
  Receipt Date: 20120702
  Transmission Date: 20120928
  Serious: Yes (Death, Hospitalization, Congenital Anomaly, Other)
  Sender: FDA-Public Use
  Company Number: 2012MA008200

PATIENT

DRUGS (1)
  1. IBUPROFEN [Suspect]
     Indication: PATENT DUCTUS ARTERIOSUS
     Dosage: X3

REACTIONS (8)
  - HYPOXIA [None]
  - PULMONARY HYPERTENSION [None]
  - TRICUSPID VALVE INCOMPETENCE [None]
  - DILATATION VENTRICULAR [None]
  - METABOLIC ACIDOSIS [None]
  - ANURIA [None]
  - HYPOTENSION [None]
  - HYPOKINESIA [None]
